FAERS Safety Report 16042506 (Version 1)
Quarter: 2019Q1

REPORT INFORMATION
  Report Type: Spontaneous
  Country: US (occurrence: US)
  Receive Date: 20190306
  Receipt Date: 20190306
  Transmission Date: 20190418
  Serious: No
  Sender: FDA-Public Use
  Company Number: US-TEVA-2019-US-1011758

PATIENT
  Sex: Female

DRUGS (1)
  1. JUNEL FE 1/20 [Suspect]
     Active Substance: ETHINYL ESTRADIOL\NORETHINDRONE ACETATE
     Route: 065

REACTIONS (4)
  - Vulvovaginal dryness [Recovering/Resolving]
  - Loss of libido [Recovering/Resolving]
  - Feeling abnormal [Recovering/Resolving]
  - Libido decreased [Recovering/Resolving]
